FAERS Safety Report 9918879 (Version 1)
Quarter: 2014Q1

REPORT INFORMATION
  Report Type: Spontaneous
  Country: US (occurrence: US)
  Receive Date: 20140224
  Receipt Date: 20140224
  Transmission Date: 20141002
  Serious: Yes (Other)
  Sender: FDA-Public Use
  Company Number: US-PFIZER INC-2014051386

PATIENT
  Age: 60 Year
  Sex: Female
  Weight: 81.63 kg

DRUGS (2)
  1. ZOLOFT [Suspect]
     Indication: DEPRESSION
     Dosage: 25 MG, UNK
  2. ZOLOFT [Suspect]
     Dosage: 1/2 OF A 25MG TABLET, UNK

REACTIONS (4)
  - Suicidal ideation [Unknown]
  - Drug intolerance [Unknown]
  - Blood cholesterol increased [Unknown]
  - Drug effect incomplete [Unknown]
